FAERS Safety Report 21850508 (Version 1)
Quarter: 2023Q1

REPORT INFORMATION
  Report Type: Spontaneous
  Country: US (occurrence: US)
  Receive Date: 20230111
  Receipt Date: 20230111
  Transmission Date: 20230418
  Serious: No
  Sender: FDA-Public Use
  Company Number: US-MYLANLABS-2023M1000309

PATIENT
  Sex: Female

DRUGS (2)
  1. LEVOTHYROXINE [Suspect]
     Active Substance: LEVOTHYROXINE
     Indication: Product used for unknown indication
     Dosage: UNK
     Route: 065
  2. LEVOTHYROXINE [Suspect]
     Active Substance: LEVOTHYROXINE
     Dosage: HALF DOSE
     Route: 065

REACTIONS (5)
  - Dyspepsia [Unknown]
  - Malaise [Unknown]
  - Epigastric discomfort [Unknown]
  - Abdominal pain upper [Unknown]
  - Product substitution issue [Unknown]
